FAERS Safety Report 6487093-5 (Version None)
Quarter: 2009Q4

REPORT INFORMATION
  Report Type: 
  Country: None (occurrence: None)
  Receive Date: 20091210
  Receipt Date: 20090805
  Transmission Date: 20100525
  Serious: No
  Sender: FDA-Public Use
  Company Number: US-AMGEN-KDL358952

PATIENT
  Sex: Female

DRUGS (4)
  1. ENBREL [Suspect]
     Indication: RHEUMATOID ARTHRITIS
     Route: 058
  2. SULFASALAZINE [Concomitant]
     Route: 048
  3. LEFLUNOMIDE [Concomitant]
     Route: 048
  4. PLAQUENIL [Concomitant]
     Route: 048

REACTIONS (1)
  - INJECTION SITE RASH [None]
